FAERS Safety Report 6059465-4 (Version None)
Quarter: 2009Q1

REPORT INFORMATION
  Report Type: 
  Country: None (occurrence: None)
  Receive Date: 20090130
  Receipt Date: 20090121
  Transmission Date: 20090719
  Serious: Yes (Other)
  Sender: FDA-Public Use
  Company Number: PHHY2009IT02632

PATIENT
  Sex: Male

DRUGS (2)
  1. EXJADE [Suspect]
     Indication: MYELODYSPLASTIC SYNDROME
     Dosage: 10 MG/DAY
     Route: 048
     Dates: start: 20080201
  2. EXJADE [Suspect]
     Indication: IRON OVERLOAD

REACTIONS (2)
  - BIOPSY LYMPH GLAND [None]
  - HODGKIN'S DISEASE [None]
